FAERS Safety Report 6199655-3 (Version None)
Quarter: 2009Q2

REPORT INFORMATION
  Report Type: 
  Country: None (occurrence: None)
  Receive Date: 20090522
  Receipt Date: 20071003
  Transmission Date: 20091009
  Serious: Yes (Hospitalization)
  Sender: FDA-Public Use
  Company Number: US-ALEXION-A200700059

PATIENT
  Sex: Male

DRUGS (31)
  1. SOLIRIS [Suspect]
     Indication: PAROXYSMAL NOCTURNAL HAEMOGLOBINURIA
     Dosage: 600 MG, SINGLE
     Route: 042
     Dates: start: 20070508, end: 20070508
  2. SOLIRIS [Suspect]
     Dosage: 600 MG, SINGLE
     Route: 042
     Dates: start: 20070520, end: 20070520
  3. SOLIRIS [Suspect]
     Dosage: 600 MG, SINGLE
     Route: 042
     Dates: start: 20070601, end: 20070601
  4. SOLIRIS [Suspect]
     Dosage: 600 MG, SINGLE
     Route: 042
     Dates: start: 20070613, end: 20070613
  5. SOLIRIS [Suspect]
     Dosage: 900 MG, SINGLE
     Route: 042
     Dates: start: 20070625, end: 20070625
  6. SOLIRIS [Suspect]
     Dosage: 900 MG, SINGLE
     Route: 042
     Dates: start: 20070707, end: 20070707
  7. SOLIRIS [Suspect]
     Dosage: 900 MG, SINGLE
     Route: 042
     Dates: start: 20070719, end: 20070719
  8. SOLIRIS [Suspect]
     Dosage: 900 MG, SINGLE
     Route: 042
     Dates: start: 20070731, end: 20070731
  9. SOLIRIS [Suspect]
     Dosage: 900 MG, SINGLE
     Route: 042
     Dates: start: 20070812, end: 20070812
  10. SOLIRIS [Suspect]
     Dosage: 900 MG, SINGLE
     Route: 042
     Dates: start: 20070824, end: 20070824
  11. SOLIRIS [Suspect]
     Dosage: 900 MG, SINGLE
     Route: 042
     Dates: start: 20070905, end: 20070905
  12. SOLIRIS [Suspect]
     Dosage: 900 MG, SINGLE
     Route: 042
     Dates: start: 20070917, end: 20070917
  13. ADVAIR HFA [Concomitant]
     Dosage: 500/50, EVERY MORNING AND NIGHT
  14. MORPHINE [Concomitant]
     Dosage: UNK, BID
  15. CITRUCEL [Concomitant]
     Dosage: UNK, BID
  16. LYRICA [Concomitant]
     Dosage: UNK, TID
  17. ASPIRIN [Concomitant]
     Dosage: UNK, QD
  18. TOPROL-XL [Concomitant]
     Dosage: UNK, QD
  19. EFFEXOR [Concomitant]
     Dosage: UNK, QD
  20. LASIX [Concomitant]
     Dosage: UNK, QD
  21. PERI-COLACE [Concomitant]
     Dosage: UNK, QD
  22. DULCOLAX                           /00064401/ [Concomitant]
     Dosage: UNK, QD
  23. LUNESTA [Concomitant]
     Dosage: UNK, EVERY NIGHT
  24. ZANAFLEX [Concomitant]
     Dosage: UNK, EVERY NIGHT
  25. FRAGMIN [Concomitant]
     Dosage: 18,000 UNITS, EVERY NIGHT
  26. PROCRIT                            /00909301/ [Concomitant]
     Dosage: 80,000 UNITS EVERY THURSDAY AS NEEDED
  27. FOSAMAX [Concomitant]
     Dosage: 70 MG, EVERY FRIDAY
  28. RESTORIL [Concomitant]
     Dosage: UNK, PRN
  29. ATIVAN [Concomitant]
     Dosage: UNK, PRN
  30. VALIUM [Concomitant]
     Dosage: UNK, PRN
  31. BLOOD AND RELATED PRODUCTS [Concomitant]
     Dosage: 2 UNITS, EVERY FIVE WEEKS

REACTIONS (5)
  - HAEMOGLOBIN DECREASED [None]
  - HAEMOLYSIS [None]
  - NEUTROPENIA [None]
  - PANCYTOPENIA [None]
  - PNEUMONIA [None]
